FAERS Safety Report 8668583 (Version 2)
Quarter: 2013Q3

REPORT INFORMATION
  Report Type: Spontaneous
  Country: US (occurrence: None)
  Receive Date: 20120405
  Receipt Date: 20130724
  Transmission Date: 20140515
  Serious: Yes (Other)
  Sender: FDA-Public Use
  Company Number: PHHY2011US23943

PATIENT
  Age: 74 Year
  Sex: Female

DRUGS (12)
  1. RECLAST [Suspect]
     Indication: OSTEOPENIA
     Dosage: 5 MG PER YEAR, INTRAVENOUS, 5 MG, INTRAVENOUS
     Route: 042
     Dates: start: 201006
  2. LIPITOR [Concomitant]
  3. ZYRTEC [Concomitant]
  4. MULTI-VITAMIN [Concomitant]
  5. VITAMIN C [Concomitant]
  6. VITAMIN E (TOCOPHERYL) [Concomitant]
  7. ASPIRIN (ACETYLSALICYLIC ACID) [Concomitant]
  8. CALTRATE [Concomitant]
  9. VITAMIN D (ERGOCALCIFEROL) [Concomitant]
  10. TUMS (CALCIUM CARBONATE) [Concomitant]
  11. MELOXICAM (MELOXICAM) [Concomitant]
  12. ZIRTEC (CETIRIZINE HYDROCHLORIDE) [Concomitant]

REACTIONS (4)
  - Arthritis [None]
  - Groin pain [None]
  - Arthralgia [None]
  - Pain in jaw [None]
